FAERS Safety Report 16553211 (Version 4)
Quarter: 2019Q3

REPORT INFORMATION
  Report Type: Spontaneous
  Country: US (occurrence: US)
  Receive Date: 20190710
  Receipt Date: 20190826
  Transmission Date: 20191004
  Serious: No
  Sender: FDA-Public Use
  Company Number: US-PFIZER INC-2018400414

PATIENT
  Age: 62 Year
  Sex: Female
  Weight: 48.73 kg

DRUGS (7)
  1. LYRICA [Suspect]
     Active Substance: PREGABALIN
     Indication: NEUROPATHY PERIPHERAL
     Dosage: 75 MG, 2X/DAY
     Route: 048
     Dates: start: 2016
  2. LYRICA [Suspect]
     Active Substance: PREGABALIN
     Indication: PHYSICAL ASSAULT
     Dosage: 75 MG, 3X/DAY
     Route: 048
  3. LYRICA [Suspect]
     Active Substance: PREGABALIN
     Indication: NEURALGIA
  4. LYRICA [Suspect]
     Active Substance: PREGABALIN
     Indication: PAIN
  5. LYRICA [Suspect]
     Active Substance: PREGABALIN
     Indication: POST-TRAUMATIC STRESS DISORDER
  6. LYRICA [Suspect]
     Active Substance: PREGABALIN
     Indication: DEPRESSION
  7. LYRICA [Suspect]
     Active Substance: PREGABALIN
     Indication: ANXIETY

REACTIONS (5)
  - Product prescribing error [Unknown]
  - Therapeutic response unexpected [Unknown]
  - Intentional product use issue [Unknown]
  - Pre-existing condition improved [Unknown]
  - Pain in extremity [Not Recovered/Not Resolved]

NARRATIVE: CASE EVENT DATE: 2019
